FAERS Safety Report 15293182 (Version 1)
Quarter: 2018Q4

REPORT INFORMATION
  Report Type: Report from Study
  Country: AU (occurrence: AU)
  Receive Date: 20180820
  Receipt Date: 20180820
  Transmission Date: 20190204
  Serious: Yes (Hospitalization)
  Sender: FDA-Public Use
  Company Number: AU-SUN PHARMACEUTICAL INDUSTRIES LTD-2018R3-181417

PATIENT
  Sex: Male
  Weight: 77 kg

DRUGS (2)
  1. FLEXAGIL [Concomitant]
     Indication: JOINT INJURY
     Dosage: UNK, PRN (1 APPLICATION)
     Route: 061
     Dates: start: 20160115
  2. MK-3222 INJECTION [Suspect]
     Active Substance: TILDRAKIZUMAB
     Indication: PSORIASIS
     Dosage: UNK
     Route: 058
     Dates: start: 20180515

REACTIONS (1)
  - Inguinal hernia [Recovered/Resolved]

NARRATIVE: CASE EVENT DATE: 20180515
